FAERS Safety Report 9745262 (Version 2)
Quarter: 2013Q4

REPORT INFORMATION
  Report Type: Spontaneous
  Country: US (occurrence: US)
  Receive Date: 20131211
  Receipt Date: 20131211
  Transmission Date: 20140711
  Serious: Yes (Other)
  Sender: FDA-Public Use
  Company Number: US-BEH-2011028335

PATIENT
  Age: 48 Year
  Sex: Male
  Weight: 65 kg

DRUGS (12)
  1. ZEMAIRA [Suspect]
     Indication: ALPHA-1 ANTI-TRYPSIN DEFICIENCY
     Dosage: 6 ML/MIN
     Route: 042
     Dates: start: 20110421
  2. ZEMAIRA [Suspect]
     Dosage: MAX RATE=0.08ML PER KG PER MINUET (5.4ML/MIN)
     Route: 042
     Dates: start: 20121207, end: 20121207
  3. ADVAIR [Concomitant]
  4. SPIRIVA [Concomitant]
  5. ALBUTEROL [Concomitant]
  6. PREDNISONE [Concomitant]
  7. DIPHENHYDRAMINE [Concomitant]
  8. EPINEPHRINE [Concomitant]
  9. LIDOCAINE/PRILOCAINE [Concomitant]
  10. SODIUM CHLORIDE [Concomitant]
  11. VENTOLIN [Concomitant]
  12. ADVAIR [Concomitant]

REACTIONS (6)
  - Atypical mycobacterial pneumonia [Unknown]
  - Lung infection [Unknown]
  - Mycobacterial infection [Unknown]
  - Infection [Unknown]
  - Dyspnoea [Recovered/Resolved]
  - Chronic obstructive pulmonary disease [Unknown]
